FAERS Safety Report 23517096 (Version 1)
Quarter: 2024Q1

REPORT INFORMATION
  Report Type: Report from Study
  Country: CA (occurrence: CA)
  Receive Date: 20240213
  Receipt Date: 20240213
  Transmission Date: 20240410
  Serious: Yes (Other)
  Sender: FDA-Public Use
  Company Number: CA-ABBVIE-5611058

PATIENT
  Sex: Male

DRUGS (1)
  1. HUMIRA [Suspect]
     Active Substance: ADALIMUMAB
     Indication: Rheumatoid arthritis
     Route: 058
     Dates: start: 20191010

REACTIONS (6)
  - Oesophageal obstruction [Unknown]
  - Dysphagia [Unknown]
  - Gait disturbance [Unknown]
  - Mobility decreased [Unknown]
  - Vomiting [Unknown]
  - Balance disorder [Unknown]
